FAERS Safety Report 9048623 (Version 1)
Quarter: 2013Q1

REPORT INFORMATION
  Report Type: Spontaneous
  Country: US (occurrence: None)
  Receive Date: 20130130
  Receipt Date: 20130130
  Transmission Date: 20140127
  Serious: Yes (Hospitalization)
  Sender: FDA-Public Use
  Company Number: None

PATIENT
  Age: 82 Year
  Sex: Male
  Weight: 71.3 kg

DRUGS (13)
  1. LEVAQUIN [Suspect]
     Indication: BLADDER CATHETERISATION
     Dosage: RECENT
     Route: 048
  2. LOPERAMIDE [Concomitant]
  3. WELCHOL [Concomitant]
  4. KCL [Concomitant]
  5. VIT D3/B12 [Concomitant]
  6. BENICAR HCT [Concomitant]
  7. JANUVIA [Concomitant]
  8. IPRATROPIUM [Concomitant]
  9. PRAVACHOL [Concomitant]
  10. SYNTHROID [Concomitant]
  11. PROTONIX [Concomitant]
  12. NORVASC [Concomitant]
  13. ASA [Concomitant]

REACTIONS (8)
  - Drug eruption [None]
  - Rash generalised [None]
  - Hallucination [None]
  - Pyrexia [None]
  - Drug hypersensitivity [None]
  - Constipation [None]
  - Renal failure acute [None]
  - Hypophagia [None]
